FAERS Safety Report 18866682 (Version 1)
Quarter: 2021Q1

REPORT INFORMATION
  Report Type: Spontaneous
  Country: US (occurrence: US)
  Receive Date: 20210209
  Receipt Date: 20210209
  Transmission Date: 20210420
  Serious: Yes (Hospitalization)
  Sender: FDA-Public Use
  Company Number: None

PATIENT
  Age: 68 Year
  Sex: Male
  Weight: 74 kg

DRUGS (1)
  1. KYMRIAH [Suspect]
     Active Substance: TISAGENLECLEUCEL
     Indication: DIFFUSE LARGE B-CELL LYMPHOMA
     Dosage: ?          OTHER FREQUENCY:3.1X10^8CAR+T ONCE;?
     Route: 042
     Dates: start: 20200914, end: 20200914

REACTIONS (2)
  - SARS-CoV-2 test positive [None]
  - Disease progression [None]

NARRATIVE: CASE EVENT DATE: 20201123
